FAERS Safety Report 6253876-X (Version None)
Quarter: 2009Q3

REPORT INFORMATION
  Report Type: 
  Country: None (occurrence: None)
  Receive Date: 20090702
  Receipt Date: 20090622
  Transmission Date: 20100115
  Serious: No
  Sender: FDA-Public Use
  Company Number: PHHY2009BR25997

PATIENT
  Sex: Male

DRUGS (5)
  1. FORASEQ [Suspect]
     Indication: ASTHMA
     Dosage: TWO TIMES DAILY
     Dates: start: 20080801
  2. TEGRETOL [Concomitant]
     Dosage: 200 MG, HALF TABLET IN MORNING, HALF IN AFTERNOON AND HALF IN NIGHT
     Route: 048
  3. GARDENAL [Concomitant]
     Dosage: 100 MG, BID
     Route: 048
  4. CAPTOPRIL [Concomitant]
     Dosage: 25 MG, BID
     Route: 048
  5. PREDNISONE [Concomitant]

REACTIONS (1)
  - ASTHMA [None]
